FAERS Safety Report 17102480 (Version 14)
Quarter: 2020Q2

REPORT INFORMATION
  Report Type: Report from Study
  Country: None (occurrence: NL)
  Receive Date: 20191202
  Receipt Date: 20200407
  Transmission Date: 20200713
  Serious: Yes (Hospitalization)
  Sender: FDA-Public Use
  Company Number: NL-ABBVIE-19K-114-3176563-00

PATIENT
  Age: 77 Year
  Sex: Female
  Weight: 91.5 kg

DRUGS (5)
  1. DUODOPA [Suspect]
     Active Substance: CARBIDOPA\LEVODOPA
     Dosage: MD 10.0 CD 4.2 ED 2.0 CDN 2.1 EDN 2.0; 24 HOUR TREATMENT
     Route: 050
  2. PRAMIPEXOLE. [Suspect]
     Active Substance: PRAMIPEXOLE
     Indication: PARKINSON^S DISEASE
     Route: 065
  3. OXAZEPAM. [Concomitant]
     Active Substance: OXAZEPAM
     Indication: PRODUCT USED FOR UNKNOWN INDICATION
     Dosage: IF NEEDED TWICE
  4. DUODOPA [Suspect]
     Active Substance: CARBIDOPA\LEVODOPA
     Indication: PARKINSON^S DISEASE
     Dosage: MD 8.5 CD 4.2 ED 2.0 CDN 2.1 EDN 2.0; 24 HOUR TREATMENT
     Route: 050
     Dates: start: 20191112
  5. MACROGOL [Concomitant]
     Active Substance: POLYETHYLENE GLYCOLS
     Indication: ABNORMAL FAECES
     Dosage: MD 8.5 CD 2.1 ED 2.0 CDN 2.1

REACTIONS (48)
  - Blood pressure abnormal [Not Recovered/Not Resolved]
  - Depression [Recovered/Resolved]
  - Hypersomnia [Not Recovered/Not Resolved]
  - Initial insomnia [Not Recovered/Not Resolved]
  - Wrong technique in device usage process [Unknown]
  - Restlessness [Not Recovered/Not Resolved]
  - Dyschezia [Not Recovered/Not Resolved]
  - Feeling abnormal [Not Recovered/Not Resolved]
  - Vitreous floaters [Not Recovered/Not Resolved]
  - Device occlusion [Unknown]
  - Drug ineffective [Recovered/Resolved]
  - Dyskinesia [Not Recovered/Not Resolved]
  - Device alarm issue [Unknown]
  - Chills [Not Recovered/Not Resolved]
  - Fatigue [Not Recovered/Not Resolved]
  - Dyspnoea [Not Recovered/Not Resolved]
  - Tremor [Not Recovered/Not Resolved]
  - Device kink [Unknown]
  - Aspiration [Not Recovered/Not Resolved]
  - Faecal volume decreased [Not Recovered/Not Resolved]
  - Heart rate increased [Not Recovered/Not Resolved]
  - Constipation [Recovered/Resolved]
  - Stoma site abscess [Unknown]
  - Stoma site abscess [Recovered/Resolved]
  - Abnormal faeces [Recovered/Resolved]
  - Tension [Not Recovered/Not Resolved]
  - Nasal discomfort [Unknown]
  - Hypophagia [Recovering/Resolving]
  - Musculoskeletal stiffness [Recovered/Resolved]
  - Abdominal abscess [Recovered/Resolved]
  - Unevaluable event [Recovered/Resolved]
  - On and off phenomenon [Recovered/Resolved]
  - Hallucination [Recovered/Resolved]
  - Bradykinesia [Not Recovered/Not Resolved]
  - Malaise [Recovered/Resolved]
  - Malaise [Recovered/Resolved]
  - Emotional disorder [Not Recovered/Not Resolved]
  - Abnormal faeces [Not Recovered/Not Resolved]
  - Speech disorder [Not Recovered/Not Resolved]
  - Device issue [Unknown]
  - Abnormal dreams [Recovering/Resolving]
  - Choking [Recovered/Resolved]
  - Rickets [Recovered/Resolved]
  - Adverse drug reaction [Not Recovered/Not Resolved]
  - Affective disorder [Recovered/Resolved]
  - Muscle rigidity [Recovering/Resolving]
  - Dyskinesia [Recovered/Resolved]
  - Device material issue [Unknown]

NARRATIVE: CASE EVENT DATE: 2019
